FAERS Safety Report 6136747-9 (Version None)
Quarter: 2009Q1

REPORT INFORMATION
  Report Type: 
  Country: None (occurrence: None)
  Receive Date: 20090325
  Receipt Date: 20090313
  Transmission Date: 20090719
  Serious: Yes (Other)
  Sender: FDA-Public Use
  Company Number: JPI-P-006516

PATIENT
  Age: 51 Year
  Sex: Female

DRUGS (1)
  1. XYREM [Suspect]
     Indication: INSOMNIA
     Dosage: 3 GM (1.5 GM, 2 IN 1 D), ORAL
     Route: 048
     Dates: start: 20070529

REACTIONS (1)
  - KNEE OPERATION [None]
